FAERS Safety Report 4335122-7 (Version None)
Quarter: 2004Q2

REPORT INFORMATION
  Report Type: 
  Country: None (occurrence: None)
  Receive Date: 20040408
  Receipt Date: 20040310
  Transmission Date: 20050107
  Serious: Yes (Hospitalization)
  Sender: FDA-Public Use
  Company Number: PHFR2004GB01399

PATIENT
  Age: 32 Year
  Sex: Female

DRUGS (2)
  1. CLOZARIL [Suspect]
     Indication: SCHIZOPHRENIA
     Dosage: 700MG/DAY
     Route: 048
     Dates: start: 20021213
  2. HALOPERIDOL [Concomitant]
     Dosage: 10 MG, TID
     Route: 048
     Dates: start: 20020501

REACTIONS (3)
  - HIP FRACTURE [None]
  - OSTEOPENIA [None]
  - UPPER LIMB FRACTURE [None]
